FAERS Safety Report 6246337-5 (Version None)
Quarter: 2009Q2

REPORT INFORMATION
  Report Type: 
  Country: None (occurrence: None)
  Receive Date: 20090626
  Receipt Date: 20090622
  Transmission Date: 20091009
  Serious: Yes (Hospitalization)
  Sender: FDA-Public Use
  Company Number: US-ASTRAZENECA-2009UW16691

PATIENT
  Age: 881 Month
  Sex: Male
  Weight: 96.6 kg

DRUGS (6)
  1. CASODEX [Suspect]
     Indication: PROSTATE CANCER
     Route: 048
     Dates: start: 20080101
  2. REGLAN [Concomitant]
     Indication: CHOKING
  3. LISINOPRIL AND HYDROCHLOROTHIAZIDE [Concomitant]
     Indication: HYPERTENSION
     Dosage: 20/12.5
  4. ZANTAC OTC [Concomitant]
     Dosage: 20/12.5
  5. ELIGARD [Concomitant]
     Dosage: EVERY SIX MONTHS
  6. BENADRYL [Concomitant]

REACTIONS (3)
  - ABDOMINAL PAIN UPPER [None]
  - GYNAECOMASTIA [None]
  - HEART RATE INCREASED [None]
